FAERS Safety Report 15665414 (Version 14)
Quarter: 2020Q1

REPORT INFORMATION
  Report Type: Spontaneous
  Country: CA (occurrence: CA)
  Receive Date: 20181128
  Receipt Date: 20200226
  Transmission Date: 20200409
  Serious: Yes (Hospitalization, Other)
  Sender: FDA-Public Use
  Company Number: CA-ABBVIE-18K-028-2570644-00

PATIENT
  Age: 78 Year
  Sex: Female

DRUGS (63)
  1. HUMIRA [Suspect]
     Active Substance: ADALIMUMAB
     Indication: JOINT STIFFNESS
  2. SODIUM AUROTHIOMALATE [Suspect]
     Active Substance: GOLD SODIUM THIOMALATE
     Indication: RHEUMATOID ARTHRITIS
     Route: 030
  3. SODIUM AUROTHIOMALATE [Suspect]
     Active Substance: GOLD SODIUM THIOMALATE
     Route: 048
  4. DICLOFENAC [Suspect]
     Active Substance: DICLOFENAC
     Indication: MOBILITY DECREASED
  5. HYDROXYCHLOROQUINE [Suspect]
     Active Substance: HYDROXYCHLOROQUINE
     Indication: RHEUMATOID ARTHRITIS
     Route: 048
  6. ASCORBIC ACID. [Suspect]
     Active Substance: ASCORBIC ACID
     Indication: RHEUMATOID ARTHRITIS
     Route: 065
  7. APO DICLOFENAC OPHTHALMIC [Suspect]
     Active Substance: DICLOFENAC SODIUM
     Indication: RHEUMATOID ARTHRITIS
     Route: 061
  8. VITAMIN C [Suspect]
     Active Substance: ASCORBIC ACID
     Indication: RHEUMATOID ARTHRITIS
     Route: 065
  9. ARAVA [Suspect]
     Active Substance: LEFLUNOMIDE
     Indication: MOBILITY DECREASED
  10. ENBREL [Suspect]
     Active Substance: ETANERCEPT
     Indication: RHEUMATOID ARTHRITIS
     Route: 058
  11. METHOTREXATE. [Suspect]
     Active Substance: METHOTREXATE
     Indication: MOBILITY DECREASED
  12. MOTRIN [Suspect]
     Active Substance: IBUPROFEN
     Indication: JOINT STIFFNESS
  13. NAPROSYN [Suspect]
     Active Substance: NAPROXEN
     Indication: PAIN
  14. GOLD SODIUM THIOMALATE [Suspect]
     Active Substance: GOLD SODIUM THIOMALATE
     Indication: RHEUMATOID ARTHRITIS
     Route: 065
  15. APO ASA [Suspect]
     Active Substance: ASPIRIN
     Indication: RHEUMATOID ARTHRITIS
     Route: 065
  16. NAPROXEN SODIUM. [Suspect]
     Active Substance: NAPROXEN SODIUM
     Indication: RHEUMATOID ARTHRITIS
     Route: 065
  17. HUMIRA [Suspect]
     Active Substance: ADALIMUMAB
     Indication: RHEUMATOID ARTHRITIS
     Route: 058
  18. DICLOFENAC POTASSIUM. [Suspect]
     Active Substance: DICLOFENAC POTASSIUM
     Indication: RHEUMATOID ARTHRITIS
     Route: 065
  19. METHOTREXATE. [Suspect]
     Active Substance: METHOTREXATE
     Indication: JOINT STIFFNESS
  20. VOLTAREN [Suspect]
     Active Substance: DICLOFENAC SODIUM
     Indication: RHEUMATOID ARTHRITIS
     Route: 065
  21. ASPIRIN. [Suspect]
     Active Substance: ASPIRIN
     Indication: RHEUMATOID ARTHRITIS
     Route: 048
  22. ASPIRIN. [Suspect]
     Active Substance: ASPIRIN
     Indication: MOBILITY DECREASED
  23. CLOPIDOGREL [Suspect]
     Active Substance: CLOPIDOGREL BISULFATE
     Indication: RHEUMATOID ARTHRITIS
     Route: 065
  24. GOLD SODIUM THIOMALATE [Suspect]
     Active Substance: GOLD SODIUM THIOMALATE
     Indication: MOBILITY DECREASED
  25. ASPIRIN. [Suspect]
     Active Substance: ASPIRIN
     Indication: PAIN
  26. NAPROXEN. [Suspect]
     Active Substance: NAPROXEN
     Indication: RHEUMATOID ARTHRITIS
     Route: 065
  27. HYDROXYCHLOROQUINE [Suspect]
     Active Substance: HYDROXYCHLOROQUINE
     Indication: JOINT STIFFNESS
  28. METHOTREXATE SODIUM. [Suspect]
     Active Substance: METHOTREXATE SODIUM
     Indication: RHEUMATOID ARTHRITIS
     Route: 065
  29. ACETYLSALICYLIC ACID W/CLOPIDOGREL [Suspect]
     Active Substance: ASPIRIN\CLOPIDOGREL
     Indication: RHEUMATOID ARTHRITIS
     Route: 065
  30. ENBREL [Suspect]
     Active Substance: ETANERCEPT
     Indication: JOINT STIFFNESS
  31. METHOTREXATE. [Suspect]
     Active Substance: METHOTREXATE
     Indication: RHEUMATOID ARTHRITIS
     Route: 065
  32. METHOTREXATE. [Suspect]
     Active Substance: METHOTREXATE
     Indication: PAIN
  33. DICLOFENAC [Suspect]
     Active Substance: DICLOFENAC
     Indication: RHEUMATOID ARTHRITIS
     Route: 065
  34. HYDROXYCHLOROQUINE [Suspect]
     Active Substance: HYDROXYCHLOROQUINE
     Indication: MOBILITY DECREASED
  35. APO HYDROXYCHLOROQUINE [Suspect]
     Active Substance: HYDROXYCHLOROQUINE
     Indication: RHEUMATOID ARTHRITIS
     Route: 065
  36. APO-DICLOFENAC [Suspect]
     Active Substance: DICLOFENAC
     Indication: RHEUMATOID ARTHRITIS
     Route: 061
  37. ARAVA [Suspect]
     Active Substance: LEFLUNOMIDE
     Indication: PAIN
  38. ARAVA [Suspect]
     Active Substance: LEFLUNOMIDE
     Indication: JOINT STIFFNESS
  39. ENBREL [Suspect]
     Active Substance: ETANERCEPT
     Indication: PAIN
  40. NAPROSYN [Suspect]
     Active Substance: NAPROXEN
     Indication: RHEUMATOID ARTHRITIS
     Route: 065
  41. NAPROSYN [Suspect]
     Active Substance: NAPROXEN
     Indication: MOBILITY DECREASED
  42. ASPIRIN. [Suspect]
     Active Substance: ASPIRIN
     Indication: JOINT STIFFNESS
  43. TRAMADOL HYDROCHLORIDE. [Concomitant]
     Active Substance: TRAMADOL HYDROCHLORIDE
     Indication: RHEUMATOID ARTHRITIS
     Route: 065
  44. HUMIRA [Suspect]
     Active Substance: ADALIMUMAB
     Indication: PAIN
  45. ARAVA [Suspect]
     Active Substance: LEFLUNOMIDE
     Indication: RHEUMATOID ARTHRITIS
     Route: 048
  46. ENBREL [Suspect]
     Active Substance: ETANERCEPT
     Indication: MOBILITY DECREASED
  47. MOTRIN [Suspect]
     Active Substance: IBUPROFEN
     Indication: RHEUMATOID ARTHRITIS
     Route: 065
  48. MOTRIN [Suspect]
     Active Substance: IBUPROFEN
     Indication: MOBILITY DECREASED
  49. PLAQUENIL [Suspect]
     Active Substance: HYDROXYCHLOROQUINE SULFATE
     Indication: RHEUMATOID ARTHRITIS
     Route: 048
  50. GOLD SODIUM THIOMALATE [Suspect]
     Active Substance: GOLD SODIUM THIOMALATE
     Indication: PAIN
  51. HYDROXYCHLOROQUINE SULFATE. [Suspect]
     Active Substance: HYDROXYCHLOROQUINE SULFATE
     Indication: RHEUMATOID ARTHRITIS
     Route: 065
  52. TRIMETHOPRIM. [Suspect]
     Active Substance: TRIMETHOPRIM
     Indication: RHEUMATOID ARTHRITIS
     Route: 065
  53. ACETYLSALICYLIC ACID [Suspect]
     Active Substance: ASPIRIN
     Indication: RHEUMATOID ARTHRITIS
     Route: 065
  54. IBUPROFEN. [Suspect]
     Active Substance: IBUPROFEN
     Indication: RHEUMATOID ARTHRITIS
     Route: 065
  55. TRAMADOL. [Concomitant]
     Active Substance: TRAMADOL
     Indication: PRODUCT USED FOR UNKNOWN INDICATION
     Route: 065
  56. HUMIRA [Suspect]
     Active Substance: ADALIMUMAB
     Indication: MOBILITY DECREASED
  57. MOTRIN [Suspect]
     Active Substance: IBUPROFEN
     Indication: PAIN
  58. NAPROSYN [Suspect]
     Active Substance: NAPROXEN
     Indication: JOINT STIFFNESS
  59. GOLD SODIUM THIOMALATE [Suspect]
     Active Substance: GOLD SODIUM THIOMALATE
     Indication: JOINT STIFFNESS
  60. DICLOFENAC [Suspect]
     Active Substance: DICLOFENAC
     Indication: PAIN
  61. DICLOFENAC [Suspect]
     Active Substance: DICLOFENAC
     Indication: JOINT STIFFNESS
  62. HYDROXYCHLOROQUINE [Suspect]
     Active Substance: HYDROXYCHLOROQUINE
     Indication: PAIN
  63. SULFAMETHOXAZOLE AND TRIMETHOPRIM [Suspect]
     Active Substance: SULFAMETHOXAZOLE\TRIMETHOPRIM
     Indication: RHEUMATOID ARTHRITIS
     Route: 065

REACTIONS (49)
  - Musculoskeletal disorder [Not Recovered/Not Resolved]
  - Foot operation [Recovered/Resolved]
  - Headache [Recovered/Resolved]
  - Ear infection [Recovered/Resolved]
  - Abdominal discomfort [Not Recovered/Not Resolved]
  - Headache [Not Recovered/Not Resolved]
  - Feeding disorder [Recovered/Resolved]
  - Arthropathy [Recovered/Resolved]
  - Adverse drug reaction [Recovered/Resolved]
  - Pharyngitis [Recovered/Resolved]
  - Gastrointestinal pain [Not Recovered/Not Resolved]
  - Drug hypersensitivity [Recovered/Resolved]
  - Functional gastrointestinal disorder [Not Recovered/Not Resolved]
  - Weight decreased [Not Recovered/Not Resolved]
  - Arthropathy [Not Recovered/Not Resolved]
  - Abdominal pain upper [Not Recovered/Not Resolved]
  - Hypophagia [Not Recovered/Not Resolved]
  - Off label use [Not Recovered/Not Resolved]
  - Dizziness [Not Recovered/Not Resolved]
  - Deafness transitory [Recovered/Resolved]
  - Abdominal pain upper [Recovered/Resolved]
  - Pharyngitis [Not Recovered/Not Resolved]
  - Vomiting [Not Recovered/Not Resolved]
  - Hypophagia [Recovered/Resolved]
  - Abnormal loss of weight [Recovered/Resolved]
  - Feeding disorder [Not Recovered/Not Resolved]
  - Decreased appetite [Not Recovered/Not Resolved]
  - Weight decreased [Recovered/Resolved]
  - Shoulder arthroplasty [Recovered/Resolved]
  - Foot operation [Not Recovered/Not Resolved]
  - Gastrointestinal disorder [Recovered/Resolved]
  - Eating disorder [Not Recovered/Not Resolved]
  - Gastrointestinal pain [Recovered/Resolved]
  - Ear infection [Not Recovered/Not Resolved]
  - Abnormal loss of weight [Not Recovered/Not Resolved]
  - Functional gastrointestinal disorder [Recovered/Resolved]
  - Decreased appetite [Unknown]
  - Decreased appetite [Recovered/Resolved]
  - Drug hypersensitivity [Not Recovered/Not Resolved]
  - Nausea [Recovered/Resolved]
  - Nausea [Not Recovered/Not Resolved]
  - Shoulder arthroplasty [Not Recovered/Not Resolved]
  - Deafness transitory [Not Recovered/Not Resolved]
  - Musculoskeletal disorder [Recovered/Resolved]
  - Dizziness [Recovered/Resolved]
  - Deafness [Recovered/Resolved]
  - Vomiting [Recovered/Resolved]
  - Abdominal discomfort [Recovered/Resolved]
  - Adverse reaction [Not Recovered/Not Resolved]
